FAERS Safety Report 10205621 (Version 1)
Quarter: 2014Q2

REPORT INFORMATION
  Report Type: Spontaneous
  Country: US (occurrence: US)
  Receive Date: 20140529
  Receipt Date: 20140529
  Transmission Date: 20141212
  Serious: Yes (Other)
  Sender: FDA-Public Use
  Company Number: US-RB-067859-14

PATIENT
  Age: 58 Year
  Sex: Male

DRUGS (7)
  1. SUBOXONE TABLET [Suspect]
     Indication: DRUG DEPENDENCE
     Route: 060
     Dates: start: 201006
  2. SUBOXONE FILM [Suspect]
     Indication: DRUG DEPENDENCE
     Dosage: SUBOXONE FILM
     Route: 060
     Dates: end: 201402
  3. BUPRENORPHINE/NALOXONE GENERIC [Suspect]
     Indication: DRUG DEPENDENCE
     Route: 060
     Dates: start: 201402
  4. NICOTINE [Concomitant]
     Indication: PRODUCT USED FOR UNKNOWN INDICATION
     Dosage: SMOKED CIGARETTES SINCE 13 YRS OLD, IN RECENT YEARS WAS UP TO 1 PACK PER DAY.
     Route: 055
     Dates: end: 201404
  5. VITAMIN D [Concomitant]
     Indication: VITAMIN D DEFICIENCY
     Route: 048
  6. XANAX [Concomitant]
     Indication: ANXIETY
     Route: 048
  7. NICODERM PATCH [Concomitant]
     Indication: NICOTINE DEPENDENCE
     Dosage: DOSING DETAILS UNKNOWN; USED DAILY
     Route: 062
     Dates: start: 201404

REACTIONS (2)
  - Lung neoplasm malignant [Not Recovered/Not Resolved]
  - Weight decreased [Recovered/Resolved]
